FAERS Safety Report 5969877-2 (Version None)
Quarter: 2008Q4

REPORT INFORMATION
  Report Type: 
  Country: None (occurrence: None)
  Receive Date: 20081126
  Receipt Date: 20081114
  Transmission Date: 20090506
  Serious: Yes (Hospitalization, Other)
  Sender: FDA-Public Use
  Company Number: AU-PFIZER INC-2008096943

PATIENT
  Sex: Male

DRUGS (1)
  1. SUTENT [Suspect]
     Indication: RENAL CELL CARCINOMA
     Dates: start: 20080901

REACTIONS (9)
  - CONGESTIVE CARDIOMYOPATHY [None]
  - DIARRHOEA [None]
  - DYSPNOEA [None]
  - EJECTION FRACTION DECREASED [None]
  - FATIGUE [None]
  - LETHARGY [None]
  - PLATELET COUNT DECREASED [None]
  - SKIN IRRITATION [None]
  - TROPONIN INCREASED [None]
